FAERS Safety Report 17403089 (Version 1)
Quarter: 2020Q1

REPORT INFORMATION
  Report Type: Report from Study
  Country: KR (occurrence: KR)
  Receive Date: 20200211
  Receipt Date: 20200211
  Transmission Date: 20200409
  Serious: Yes (Other)
  Sender: FDA-Public Use
  Company Number: KR-JNJFOC-20200201396

PATIENT

DRUGS (1)
  1. SPORANOX [Suspect]
     Active Substance: ITRACONAZOLE
     Indication: PRODUCT USED FOR UNKNOWN INDICATION
     Dosage: QD/BID, ROM DAY 17 OF CYCLE 2 TO END OF CYCLE 3
     Route: 065

REACTIONS (6)
  - Nausea [Unknown]
  - Interstitial lung disease [Unknown]
  - Decreased appetite [Unknown]
  - Pneumonitis [Unknown]
  - Adverse event [Unknown]
  - Constipation [Unknown]
